FAERS Safety Report 4442070-0 (Version None)
Quarter: 2004Q3

REPORT INFORMATION
  Report Type: 
  Country: None (occurrence: None)
  Receive Date: 20040903
  Receipt Date: 20040430
  Transmission Date: 20050211
  Serious: Yes (Hospitalization)
  Sender: FDA-Public Use
  Company Number: 2004UW08790

PATIENT
  Age: 79 Year
  Sex: Female
  Weight: 58.9676 kg

DRUGS (5)
  1. CRESTOR [Suspect]
     Indication: BLOOD CHOLESTEROL INCREASED
     Dosage: 10 MG DAILY PO
     Route: 048
     Dates: start: 20030826, end: 20040101
  2. PROTONIX [Concomitant]
  3. NORVASC [Concomitant]
  4. LEXAPRO [Concomitant]
  5. ASPIRIN [Concomitant]

REACTIONS (3)
  - PANCREATITIS [None]
  - STRESS SYMPTOMS [None]
  - WEIGHT DECREASED [None]
